FAERS Safety Report 6725422-5 (Version None)
Quarter: 2010Q2

REPORT INFORMATION
  Report Type: 
  Country: None (occurrence: None)
  Receive Date: 20100513
  Receipt Date: 20100513
  Transmission Date: 20101027
  Serious: Yes (Other)
  Sender: FDA-Public Use
  Company Number: None

PATIENT
  Sex: Female

DRUGS (16)
  1. VICODIN [Suspect]
     Indication: POST PROCEDURAL COMPLICATION
     Dosage: 1 ORAL
     Route: 048
     Dates: start: 19930101
  2. ALBUTEROL [Concomitant]
  3. DONNATAL [Concomitant]
  4. LIBRAX [Concomitant]
  5. NEXIUM [Concomitant]
  6. HYOMAX [Concomitant]
  7. HYZAAR [Concomitant]
  8. ENULOSE [Concomitant]
  9. NITRO-DUR [Concomitant]
  10. NITROGLYCERIN [Concomitant]
  11. MICRO-K [Concomitant]
  12. PREMARIN [Concomitant]
  13. SENNA [Concomitant]
  14. SYNTHROID [Concomitant]
  15. ULTRAM [Concomitant]
  16. DYAZIDE [Concomitant]

REACTIONS (2)
  - POST PROCEDURAL COMPLICATION [None]
  - VOMITING [None]
